FAERS Safety Report 4963280-X (Version None)
Quarter: 2006Q2

REPORT INFORMATION
  Report Type: 
  Country: None (occurrence: None)
  Receive Date: 20060405
  Receipt Date: 20030605
  Transmission Date: 20061013
  Serious: Yes (Hospitalization, Disabling, Other)
  Sender: FDA-Public Use
  Company Number: US-MERCK-0306USA00758

PATIENT
  Age: 57 Year
  Sex: Female
  Weight: 128 kg

DRUGS (40)
  1. VIOXX [Suspect]
     Indication: ARTHRALGIA
     Route: 048
     Dates: start: 20010206, end: 20010731
  2. VIOXX [Suspect]
     Route: 048
  3. VIOXX [Suspect]
     Indication: BACK PAIN
     Route: 048
     Dates: start: 20010206, end: 20010731
  4. VIOXX [Suspect]
     Route: 048
  5. GLUCOPHAGE [Concomitant]
     Route: 065
  6. EVISTA [Concomitant]
     Route: 065
  7. VASOTEC [Concomitant]
     Route: 065
  8. GLUCOTROL XL [Concomitant]
     Route: 065
  9. CLARITIN [Concomitant]
     Route: 065
  10. HYDROCHLOROTHIAZIDE AND TRIAMTERENE [Concomitant]
     Route: 065
  11. ASPIRIN [Concomitant]
     Route: 065
  12. ASPIRIN [Concomitant]
     Route: 065
  13. FLOVENT [Concomitant]
     Route: 065
  14. [THERAPY UNSPECIFIED] [Concomitant]
     Route: 065
  15. CALCIUM (UNSPECIFIED) [Concomitant]
     Route: 065
  16. TRANXENE [Concomitant]
     Route: 065
  17. ZOLOFT [Concomitant]
     Route: 065
  18. UNIVASC [Concomitant]
     Route: 065
  19. AVANDIA [Concomitant]
     Route: 065
  20. PROPACET 100 [Concomitant]
     Route: 065
  21. WELLBUTRIN XL [Concomitant]
     Route: 065
  22. ALLEGRA [Concomitant]
     Route: 065
  23. TOPROL-XL [Concomitant]
     Route: 065
  24. PLAVIX [Concomitant]
     Route: 065
  25. PLAVIX [Concomitant]
     Route: 065
  26. LIPITOR [Concomitant]
     Route: 065
  27. ALBUTEROL [Concomitant]
     Route: 065
  28. GLUCOVANCE [Concomitant]
     Route: 065
  29. LASIX [Concomitant]
     Route: 065
  30. NAPROXEN [Concomitant]
     Route: 065
  31. CHLORAZEPATE [Concomitant]
     Route: 065
  32. VANCERIL [Concomitant]
     Route: 065
  33. ADVAIR DISKUS 100/50 [Concomitant]
     Route: 065
  34. DARVOCET [Concomitant]
     Indication: NECK PAIN
     Route: 065
  35. KENALOG [Concomitant]
     Route: 030
     Dates: start: 20010424
  36. VICODIN [Concomitant]
     Route: 065
     Dates: start: 20010528
  37. AVELOX [Concomitant]
     Route: 065
  38. NASONEX [Concomitant]
     Route: 065
  39. SPIRONOLACTONE [Concomitant]
     Route: 065
  40. PREDNISONE [Concomitant]
     Route: 065

REACTIONS (43)
  - ABASIA [None]
  - ANGINA PECTORIS [None]
  - ANXIETY [None]
  - ASPIRATION [None]
  - ASTHMA [None]
  - ATRIAL FIBRILLATION [None]
  - BACK DISORDER [None]
  - BLOOD PRESSURE INCREASED [None]
  - BRONCHITIS [None]
  - CARDIAC FAILURE CONGESTIVE [None]
  - CAROTID BRUIT [None]
  - CHOLELITHIASIS [None]
  - CHRONIC OBSTRUCTIVE PULMONARY DISEASE [None]
  - CONVULSION [None]
  - CORONARY ARTERY DISEASE [None]
  - DIPLOPIA [None]
  - DIZZINESS [None]
  - DRUG INEFFECTIVE [None]
  - DYSPHONIA [None]
  - DYSPNOEA [None]
  - ERYTHEMA [None]
  - EXCORIATION [None]
  - EYE SWELLING [None]
  - FACIAL PAIN [None]
  - FALL [None]
  - HEADACHE [None]
  - HILAR LYMPHADENOPATHY [None]
  - HYPERTENSION [None]
  - HYPOAESTHESIA [None]
  - HYPOKALAEMIA [None]
  - MYOCARDIAL INFARCTION [None]
  - NECK INJURY [None]
  - NODULE [None]
  - OEDEMA PERIPHERAL [None]
  - PANCREATITIS ACUTE [None]
  - PNEUMONIA [None]
  - RENAL FAILURE CHRONIC [None]
  - SINUSITIS [None]
  - SOMNOLENCE [None]
  - SWELLING FACE [None]
  - TREMOR [None]
  - TRICUSPID VALVE INCOMPETENCE [None]
  - VENOUS STASIS [None]
